FAERS Safety Report 23479909 (Version 3)
Quarter: 2025Q4

REPORT INFORMATION
  Report Type: Spontaneous
  Country: JP (occurrence: JP)
  Receive Date: 20240205
  Receipt Date: 20251230
  Transmission Date: 20260118
  Serious: Yes (Hospitalization)
  Sender: ABBVIE
  Company Number: JP-ABBVIE-5614548

PATIENT
  Age: 13 Year
  Sex: Male
  Weight: 45 kg

DRUGS (1)
  1. RINVOQ [Suspect]
     Active Substance: UPADACITINIB
     Indication: Dermatitis atopic
     Dosage: FORM STRENGTH: 15 MILLIGRAM
     Route: 048
     Dates: start: 202206, end: 20231016

REACTIONS (4)
  - Streptococcal impetigo [Recovered/Resolved]
  - Influenza [Unknown]
  - Eczema herpeticum [Unknown]
  - Streptococcal impetigo [Recovering/Resolving]

NARRATIVE: CASE EVENT DATE: 20231016
